FAERS Safety Report 26067862 (Version 1)
Quarter: 2025Q4

REPORT INFORMATION
  Report Type: Spontaneous
  Country: US (occurrence: US)
  Receive Date: 20251120
  Receipt Date: 20251120
  Transmission Date: 20260118
  Serious: No
  Sender: SANDOZ
  Company Number: US-SANDOZ-SDZ2025US086112

PATIENT
  Sex: Female
  Weight: 81.633 kg

DRUGS (2)
  1. AMITRIPTYLINE [Suspect]
     Active Substance: AMITRIPTYLINE
     Indication: Multiple sclerosis
     Dosage: 25 MG
     Route: 048
     Dates: start: 202306, end: 202312
  2. KESIMPTA [Suspect]
     Active Substance: OFATUMUMAB
     Indication: Multiple sclerosis
     Dosage: UNK, QMO
     Route: 058
     Dates: start: 202306, end: 202312

REACTIONS (2)
  - Dyspepsia [Unknown]
  - Human chorionic gonadotropin increased [Unknown]
